FAERS Safety Report 16288115 (Version 1)
Quarter: 2019Q2

REPORT INFORMATION
  Report Type: Spontaneous
  Country: DE (occurrence: DE)
  Receive Date: 20190508
  Receipt Date: 20190508
  Transmission Date: 20190711
  Serious: Yes (Death, Other)
  Sender: FDA-Public Use
  Company Number: DE-SHIRE-DE201913992

PATIENT

DRUGS (10)
  1. ADYNOVI [Suspect]
     Active Substance: ANTIHEMOPHILIC FACTOR, HUMAN RECOMBINANT
     Indication: PROPHYLAXIS
     Dosage: 3000 INTERNATIONAL UNIT, 2X A WEEK
     Route: 042
     Dates: start: 20181204
  2. ADYNOVI [Suspect]
     Active Substance: ANTIHEMOPHILIC FACTOR, HUMAN RECOMBINANT
     Dosage: 3000 INTERNATIONAL UNIT, 2X A WEEK
     Route: 042
     Dates: start: 20181223, end: 20190328
  3. ADYNOVI [Suspect]
     Active Substance: ANTIHEMOPHILIC FACTOR, HUMAN RECOMBINANT
     Indication: FACTOR VIII DEFICIENCY
     Dosage: 2000 INTERNATIONAL UNIT, 2X A WEEK
     Route: 042
     Dates: start: 20181202
  4. ADYNOVI [Suspect]
     Active Substance: ANTIHEMOPHILIC FACTOR, HUMAN RECOMBINANT
     Dosage: 1000 INTERNATIONAL UNIT, 1X/DAY:QD
     Route: 042
     Dates: start: 20190328
  5. ADYNOVI [Suspect]
     Active Substance: ANTIHEMOPHILIC FACTOR, HUMAN RECOMBINANT
     Dosage: 2000- 4000 INTERNATIONAL UNIT, DAILY- EVERY SECOND DAY
     Route: 042
     Dates: start: 20181208, end: 20181221
  6. ADYNOVI [Suspect]
     Active Substance: ANTIHEMOPHILIC FACTOR, HUMAN RECOMBINANT
     Dosage: 2000 INTERNATIONAL UNIT, 1X/DAY:QD
     Route: 042
     Dates: start: 20190328
  7. ADYNOVI [Suspect]
     Active Substance: ANTIHEMOPHILIC FACTOR, HUMAN RECOMBINANT
     Dosage: 2000- 4000 INTERNATIONAL UNIT, DAILY- EVERY SECOND DAY
     Route: 042
     Dates: start: 20181208, end: 20181221
  8. ADYNOVI [Suspect]
     Active Substance: ANTIHEMOPHILIC FACTOR, HUMAN RECOMBINANT
     Dosage: 3000 INTERNATIONAL UNIT, 2X A WEEK
     Route: 042
     Dates: start: 20181223, end: 20190328
  9. ADYNOVI [Suspect]
     Active Substance: ANTIHEMOPHILIC FACTOR, HUMAN RECOMBINANT
     Dosage: 3000 INTERNATIONAL UNIT, 2X A WEEK
     Route: 042
     Dates: start: 20181223, end: 20190328
  10. ADYNOVI [Suspect]
     Active Substance: ANTIHEMOPHILIC FACTOR, HUMAN RECOMBINANT
     Dosage: 3000 INTERNATIONAL UNIT, 2X A WEEK
     Route: 042
     Dates: start: 20181223, end: 20190328

REACTIONS (2)
  - Haemorrhage [Unknown]
  - Death [Fatal]

NARRATIVE: CASE EVENT DATE: 20190401
